FAERS Safety Report 10411666 (Version 1)
Quarter: 2014Q3

REPORT INFORMATION
  Report Type: Report from Study
  Country: ZA (occurrence: ZA)
  Receive Date: 20140827
  Receipt Date: 20140827
  Transmission Date: 20150326
  Serious: Yes (Hospitalization, Other)
  Sender: FDA-Public Use
  Company Number: ZA-BAYER-2014-078188

PATIENT
  Sex: Male

DRUGS (5)
  1. TRANSACT [ETHYL LOFLAZEPATE] [Suspect]
     Active Substance: ETHYL LOFLAZEPATE
  2. BETAFERON [Suspect]
     Active Substance: INTERFERON BETA-1B
     Dosage: UNK
     Route: 058
     Dates: end: 2009
  3. BETAFERON [Suspect]
     Active Substance: INTERFERON BETA-1B
     Dosage: UNK
     Dates: end: 2012
  4. BETAFERON [Suspect]
     Active Substance: INTERFERON BETA-1B
     Dosage: UNK
     Route: 058
     Dates: start: 2009, end: 2010
  5. BETAFERON [Suspect]
     Active Substance: INTERFERON BETA-1B
     Dosage: EVERY FOURTH DAY
     Dates: start: 2010

REACTIONS (15)
  - Tooth abscess [None]
  - Multiple sclerosis relapse [None]
  - Hospitalisation [None]
  - Multiple sclerosis [None]
  - Injection site pain [None]
  - Headache [Not Recovered/Not Resolved]
  - Asthenia [None]
  - Injection site reaction [Not Recovered/Not Resolved]
  - Secondary progressive multiple sclerosis [None]
  - Gait disturbance [None]
  - Pruritus [Recovering/Resolving]
  - Injection site ulcer [Not Recovered/Not Resolved]
  - Fatigue [None]
  - Drug hypersensitivity [Recovering/Resolving]
  - Intentional product misuse [None]

NARRATIVE: CASE EVENT DATE: 2007
